FAERS Safety Report 10700290 (Version 1)
Quarter: 2015Q1

REPORT INFORMATION
  Report Type: Spontaneous
  Country: TR (occurrence: None)
  Receive Date: 20150107
  Receipt Date: 20150107
  Transmission Date: 20150721
  Serious: Yes (Other)
  Sender: FDA-Public Use
  Company Number: FK201406525

PATIENT
  Age: 16 Year
  Sex: Male

DRUGS (5)
  1. PREDNISOLONE. [Suspect]
     Active Substance: PREDNISOLONE
     Indication: PRODUCT USED FOR UNKNOWN INDICATION
  2. LAMIVUDINE. [Concomitant]
     Active Substance: LAMIVUDINE
  3. VINCRISTINE [Concomitant]
     Active Substance: VINCRISTINE
  4. DAUNORUBICIN [Concomitant]
     Active Substance: DAUNORUBICIN
  5. METHYLPREDNISOLONE. [Suspect]
     Active Substance: METHYLPREDNISOLONE
     Indication: PRODUCT USED FOR UNKNOWN INDICATION

REACTIONS (3)
  - Drug-induced liver injury [None]
  - Alanine aminotransferase increased [None]
  - Aspartate aminotransferase increased [None]
